FAERS Safety Report 9408283 (Version 3)
Quarter: 2013Q4

REPORT INFORMATION
  Report Type: Spontaneous
  Country: US (occurrence: US)
  Receive Date: 20130718
  Receipt Date: 20131003
  Transmission Date: 20140711
  Serious: Yes (Hospitalization)
  Sender: FDA-Public Use
  Company Number: US-GLAXOSMITHKLINE-A1029815A

PATIENT
  Age: 74 Year
  Sex: Male
  Weight: 81.6 kg

DRUGS (22)
  1. ADVAIR [Suspect]
     Indication: CHRONIC OBSTRUCTIVE PULMONARY DISEASE
     Dosage: 1PUFF TWICE PER DAY
     Route: 055
     Dates: start: 2012
  2. VENTOLIN [Concomitant]
  3. LEVOTHYROXIN [Concomitant]
  4. LISINOPRIL [Concomitant]
  5. BUPROPION [Concomitant]
  6. OMEPRAZOLE [Concomitant]
  7. PRAVASTATIN [Concomitant]
  8. SERTRALINE [Concomitant]
  9. TAMSULOSIN [Concomitant]
  10. METHOTREXATE [Concomitant]
  11. FOLIC ACID [Concomitant]
  12. AMLODIPINE [Concomitant]
  13. METOPROLOL [Concomitant]
  14. MULTIVITAMIN [Concomitant]
  15. CALCIUM + D [Concomitant]
  16. MAGNESIUM [Concomitant]
  17. B COMPLEX [Concomitant]
  18. ZINC [Concomitant]
  19. GLUCOSAMINE + CHONDROITIN [Concomitant]
  20. NITROGLYCERIN [Concomitant]
  21. SYMBICORT [Concomitant]
  22. CLOPIDOGREL BISULFATE [Concomitant]

REACTIONS (2)
  - Dysphonia [Recovering/Resolving]
  - Hospitalisation [Unknown]
